FAERS Safety Report 10357042 (Version 1)
Quarter: 2014Q3

REPORT INFORMATION
  Report Type: Spontaneous
  Country: FR (occurrence: FR)
  Receive Date: 20140801
  Receipt Date: 20140801
  Transmission Date: 20150326
  Serious: Yes (Hospitalization, Other)
  Sender: FDA-Public Use
  Company Number: FR-PFIZER INC-2014209037

PATIENT
  Age: 75 Year
  Sex: Male
  Weight: 52 kg

DRUGS (8)
  1. CALCIPARINE [Concomitant]
     Active Substance: HEPARIN CALCIUM
  2. BISOPROLOL [Concomitant]
     Active Substance: BISOPROLOL
  3. KARDEGIC [Concomitant]
     Active Substance: ASPIRIN LYSINE
  4. TAZOCILLINE [Suspect]
     Active Substance: PIPERACILLIN SODIUM\TAZOBACTAM SODIUM
     Dosage: UNK
     Route: 042
     Dates: start: 20140523, end: 20140530
  5. MIANSERIN [Concomitant]
     Active Substance: MIANSERIN
  6. PIPERACILLIN SODIUM [Suspect]
     Active Substance: PIPERACILLIN SODIUM
     Dosage: UNK
     Route: 042
     Dates: start: 20140530, end: 20140616
  7. DAFALGAN [Concomitant]
     Active Substance: ACETAMINOPHEN
  8. VANCOMYCIN [Suspect]
     Active Substance: VANCOMYCIN
     Dosage: UNK
     Route: 042
     Dates: start: 20140526, end: 20140613

REACTIONS (1)
  - Drug reaction with eosinophilia and systemic symptoms [Recovered/Resolved]

NARRATIVE: CASE EVENT DATE: 20140613
